FAERS Safety Report 24923998 (Version 5)
Quarter: 2025Q3

REPORT INFORMATION
  Report Type: Report from Study
  Country: US (occurrence: US)
  Receive Date: 20250204
  Receipt Date: 20250912
  Transmission Date: 20251021
  Serious: Yes (Hospitalization)
  Sender: SUNOVION
  Company Number: US-SMPA-2025SPA000803

PATIENT
  Age: 92 Year
  Sex: Male

DRUGS (2)
  1. ORGOVYX [Suspect]
     Active Substance: RELUGOLIX
     Indication: Prostate cancer
     Route: 048
  2. ORGOVYX [Suspect]
     Active Substance: RELUGOLIX
     Dosage: 120 MG, QD
     Route: 048
     Dates: start: 20250113

REACTIONS (6)
  - Knee arthroplasty [Unknown]
  - Gait inability [Unknown]
  - Somnolence [Unknown]
  - Fatigue [Unknown]
  - Hot flush [Unknown]
  - Blood glucose increased [Unknown]
